FAERS Safety Report 9263982 (Version 1)
Quarter: 2013Q2

REPORT INFORMATION
  Report Type: Report from Study
  Country: DE (occurrence: TR)
  Receive Date: 20130430
  Receipt Date: 20130430
  Transmission Date: 20140414
  Serious: Yes (Death)
  Sender: FDA-Public Use
  Company Number: DE-ACTELION-A-US2013-82718

PATIENT
  Age: 7 Year
  Sex: 0
  Weight: 18.14 kg

DRUGS (1)
  1. VENTAVIS [Suspect]
     Indication: PULMONARY ARTERIAL HYPERTENSION
     Dosage: UNK, 6/DAY
     Route: 055
     Dates: end: 20130424

REACTIONS (1)
  - Death [Fatal]
